FAERS Safety Report 6493765-9 (Version None)
Quarter: 2009Q4

REPORT INFORMATION
  Report Type: 
  Country: None (occurrence: None)
  Receive Date: 20091214
  Receipt Date: 20081016
  Transmission Date: 20100525
  Serious: No
  Sender: FDA-Public Use
  Company Number: US-BRISTOL-MYERS SQUIBB COMPANY-14370480

PATIENT
  Age: 40 Year
  Sex: Male
  Weight: 150 kg

DRUGS (2)
  1. ABILIFY [Suspect]
     Indication: BIPOLAR DISORDER
     Dosage: STARTED 5MG/DAY,INCREASED TO 10MG/DAY FOR 3 WEEKS + THEN TO 15MG/D. DOSE REDUCED TO 10 MG,THEN 5MG.
     Dates: start: 20050101
  2. PRILOSEC [Concomitant]

REACTIONS (6)
  - BLOOD CHOLESTEROL INCREASED [None]
  - BLOOD GLUCOSE INCREASED [None]
  - C-REACTIVE PROTEIN INCREASED [None]
  - HEPATIC STEATOSIS [None]
  - NIGHT SWEATS [None]
  - WEIGHT INCREASED [None]
